FAERS Safety Report 5049708-8 (Version None)
Quarter: 2006Q3

REPORT INFORMATION
  Report Type: 
  Country: None (occurrence: None)
  Receive Date: 20060707
  Receipt Date: 20060626
  Transmission Date: 20061208
  Serious: Yes (Hospitalization, Other)
  Sender: FDA-Public Use
  Company Number: 430008N06USA

PATIENT
  Age: 76 Year
  Sex: Female

DRUGS (3)
  1. NOVANTRONE [Suspect]
     Indication: ACUTE MYELOID LEUKAEMIA
     Dosage: 50.4 MG, 1 IN 1 DAYS,
     Dates: start: 20050910, end: 20050910
  2. GEMTUZUMAB OZOGAMICIN [Suspect]
     Indication: ACUTE MYELOID LEUKAEMIA
     Dosage: 10 MG, 1 IN 1 DAYS, INTRAVENOUS
     Route: 042
     Dates: start: 20050909, end: 20050909
  3. CYTARABINE [Suspect]
     Indication: ACUTE MYELOID LEUKAEMIA
     Dosage: 3.36 G, 2 IN 1 DAYS,
     Dates: start: 20050910, end: 20050910

REACTIONS (2)
  - FEBRILE NEUTROPENIA [None]
  - INFUSION RELATED REACTION [None]
